FAERS Safety Report 12795940 (Version 1)
Quarter: 2016Q3

REPORT INFORMATION
  Report Type: Spontaneous
  Country: US (occurrence: US)
  Receive Date: 20160929
  Receipt Date: 20160929
  Transmission Date: 20161109
  Serious: Yes (Other)
  Sender: FDA-Public Use
  Company Number: US-BRISTOL-MYERS SQUIBB COMPANY-BMS-2016-078122

PATIENT
  Sex: Female

DRUGS (3)
  1. EMPLICITI [Suspect]
     Active Substance: ELOTUZUMAB
     Indication: PLASMA CELL MYELOMA
     Dosage: 573 MG, UNK
     Route: 065
     Dates: start: 20160824
  2. EMPLICITI [Suspect]
     Active Substance: ELOTUZUMAB
     Dosage: 573 UNK, UNK
     Route: 065
     Dates: start: 20160830
  3. EMPLICITI [Suspect]
     Active Substance: ELOTUZUMAB
     Dosage: 573 UNK, UNK
     Route: 065
     Dates: start: 20160906

REACTIONS (3)
  - Malaise [Unknown]
  - Viral infection [Unknown]
  - Diarrhoea [Unknown]
